FAERS Safety Report 9645252 (Version 1)
Quarter: 2013Q4

REPORT INFORMATION
  Report Type: Spontaneous
  Country: US (occurrence: None)
  Receive Date: 20131023
  Receipt Date: 20131023
  Transmission Date: 20140711
  Serious: Yes (Hospitalization)
  Sender: FDA-Public Use
  Company Number: 2013AP009136

PATIENT
  Age: 23 Year
  Sex: Male

DRUGS (2)
  1. FENTANYL [Suspect]
     Dosage: 100 UG;QH:TDER
  2. HYDROMORPHONE [Suspect]
     Route: 041

REACTIONS (5)
  - Pain in extremity [None]
  - Perineal pain [None]
  - Nausea [None]
  - Chills [None]
  - Hyperaesthesia [None]
